FAERS Safety Report 23152312 (Version 1)
Quarter: 2023Q4

REPORT INFORMATION
  Report Type: Report from Study
  Country: US (occurrence: US)
  Receive Date: 20231107
  Receipt Date: 20231107
  Transmission Date: 20240110
  Serious: Yes (Life-Threatening, Hospitalization, Other)
  Sender: FDA-Public Use
  Company Number: US-AMGEN-USACT2023196110

PATIENT
  Age: 17 Year
  Sex: Male
  Weight: 67.2 kg

DRUGS (3)
  1. BLINATUMOMAB [Suspect]
     Active Substance: BLINATUMOMAB
     Indication: B precursor type acute leukaemia
     Dosage: TOTAL DOSE ADMINISTERED THIS COURSE 673 MCG
     Route: 065
     Dates: start: 20211217, end: 20220114
  2. DEXAMETHASONE [Suspect]
     Active Substance: DEXAMETHASONE
     Indication: B precursor type acute leukaemia
     Dosage: TOTAL DOSE ADMINISTERED THIS COURSE 18 MG
     Route: 065
     Dates: start: 20211217, end: 20211224
  3. METHOTREXATE [Suspect]
     Active Substance: METHOTREXATE
     Indication: B precursor type acute leukaemia
     Dosage: TOTAL DOSE ADMINSITERED THIS COURSE 30 MG
     Route: 065
     Dates: start: 20211217, end: 20220104

REACTIONS (7)
  - Hypokalaemia [Recovered/Resolved]
  - Platelet count decreased [Not Recovered/Not Resolved]
  - Bone pain [Not Recovered/Not Resolved]
  - Pneumonia [Not Recovered/Not Resolved]
  - Febrile neutropenia [Not Recovered/Not Resolved]
  - Liver injury [Not Recovered/Not Resolved]
  - Anaemia [Not Recovered/Not Resolved]

NARRATIVE: CASE EVENT DATE: 20211218
